FAERS Safety Report 18122277 (Version 3)
Quarter: 2021Q1

REPORT INFORMATION
  Report Type: Spontaneous
  Country: US (occurrence: US)
  Receive Date: 20200807
  Receipt Date: 20210206
  Transmission Date: 20210419
  Serious: No
  Sender: FDA-Public Use
  Company Number: US-JNJFOC-20200806651

PATIENT
  Age: 66 Year
  Sex: Female
  Weight: 47.67 kg

DRUGS (1)
  1. IMODIUM MULTI?SYMPTOM RELIEF [Suspect]
     Active Substance: DIMETHICONE\LOPERAMIDE HYDROCHLORIDE
     Indication: COLON CANCER
     Dosage: 3 TABLETS 3 TIMES ADAY
     Route: 048
     Dates: start: 20200727, end: 20200803

REACTIONS (3)
  - Off label use [Unknown]
  - Product use in unapproved indication [Unknown]
  - Product packaging difficult to open [Unknown]
